FAERS Safety Report 18006931 (Version 1)
Quarter: 2020Q3

REPORT INFORMATION
  Report Type: Spontaneous
  Country: US (occurrence: US)
  Receive Date: 20200710
  Receipt Date: 20200710
  Transmission Date: 20201103
  Serious: No
  Sender: FDA-Public Use
  Company Number: US-SUNOVION-2020SUN001936

PATIENT
  Sex: Female

DRUGS (2)
  1. LUNESTA [Suspect]
     Active Substance: ESZOPICLONE
     Dosage: 2 MG
     Route: 048
  2. BELSOMRA [Suspect]
     Active Substance: SUVOREXANT
     Dosage: UNK
     Route: 065

REACTIONS (6)
  - Pulmonary pain [Unknown]
  - Cardiac disorder [Unknown]
  - Chest discomfort [Unknown]
  - Malaise [Unknown]
  - Chest pain [Unknown]
  - Therapy cessation [Unknown]
